FAERS Safety Report 16834866 (Version 1)
Quarter: 2019Q3

REPORT INFORMATION
  Report Type: Spontaneous
  Country: US (occurrence: US)
  Receive Date: 20190920
  Receipt Date: 20190920
  Transmission Date: 20191005
  Serious: Yes (Other)
  Sender: FDA-Public Use
  Company Number: US-SUNOVION-2019SUN003876

PATIENT
  Sex: Female

DRUGS (3)
  1. APTIOM [Suspect]
     Active Substance: ESLICARBAZEPINE ACETATE
     Dosage: 1200 MG, QD (800 MG TABLET PLUS HALF 800 MG TABLET)
     Route: 048
  2. APTIOM [Suspect]
     Active Substance: ESLICARBAZEPINE ACETATE
     Dosage: 800 MG, QD
     Route: 048
  3. APTIOM [Suspect]
     Active Substance: ESLICARBAZEPINE ACETATE
     Dosage: 1200 MG, QD (600 MG X 2 TABLETS)
     Route: 048

REACTIONS (6)
  - Hypoaesthesia oral [Unknown]
  - Dysphonia [Unknown]
  - Paraesthesia oral [Unknown]
  - Seizure [Unknown]
  - Pharyngeal paraesthesia [Unknown]
  - Pharyngeal hypoaesthesia [Unknown]
